FAERS Safety Report 7867897-4 (Version None)
Quarter: 2011Q4

REPORT INFORMATION
  Report Type: 
  Country: None (occurrence: None)
  Receive Date: 20111028
  Receipt Date: 20111020
  Transmission Date: 20120403
  Serious: Yes (Death, Hospitalization)
  Sender: FDA-Public Use
  Company Number: FR-MPIJNJ-2011-04874

PATIENT

DRUGS (11)
  1. BENDAMUSTINE [Suspect]
     Indication: MULTIPLE MYELOMA
     Dosage: 120 MG, UNK
     Route: 042
     Dates: start: 20110609, end: 20110713
  2. VELCADE [Suspect]
     Indication: MULTIPLE MYELOMA
     Dosage: 2.25 MG, UNK
     Route: 042
     Dates: start: 20110609, end: 20110713
  3. SECTRAL [Concomitant]
     Indication: HYPERTENSION
     Dosage: 200 MG, UNK
     Route: 048
     Dates: start: 20110811, end: 20110908
  4. OXYCODONE HCL [Concomitant]
     Indication: PAIN
     Dosage: 5 MG, UNK
     Route: 048
     Dates: start: 20110630, end: 20110908
  5. ALLOPURINOL [Concomitant]
     Dosage: 100 MG, UNK
     Route: 048
  6. ZELITREX                           /01269701/ [Concomitant]
     Dosage: 500 MG, UNK
     Dates: start: 20110801, end: 20110905
  7. DEXAMETHASONE [Suspect]
     Indication: MULTIPLE MYELOMA
     Dosage: 20 MG, UNK
     Route: 048
     Dates: start: 20110609, end: 20110713
  8. MIRTAZAPINE [Concomitant]
     Indication: DEPRESSION
     Dosage: 15 MG, UNK
     Route: 048
     Dates: start: 20110630, end: 20110901
  9. ACETAMINOPHEN [Concomitant]
  10. NEXIUM [Concomitant]
     Dosage: 20 MG, UNK
     Dates: start: 20110701, end: 20110905
  11. MORPHINE SULFATE [Concomitant]

REACTIONS (2)
  - GENERAL PHYSICAL HEALTH DETERIORATION [None]
  - TOXIC ENCEPHALOPATHY [None]
